FAERS Safety Report 4296471-4 (Version None)
Quarter: 2004Q1

REPORT INFORMATION
  Report Type: 
  Country: None (occurrence: None)
  Receive Date: 20040217
  Receipt Date: 20040205
  Transmission Date: 20041129
  Serious: Yes (Hospitalization)
  Sender: FDA-Public Use
  Company Number: US-BRISTOL-MYERS SQUIBB COMPANY-12497343

PATIENT
  Age: 64 Year
  Sex: Female

DRUGS (6)
  1. TAXOL [Suspect]
     Indication: UTERINE CANCER
     Route: 042
     Dates: start: 20040203, end: 20040203
  2. DECADRON [Concomitant]
     Indication: PREMEDICATION
     Route: 048
     Dates: start: 20040202, end: 20040203
  3. DECADRON [Concomitant]
     Route: 042
     Dates: start: 20040203, end: 20040203
  4. ZANTAC [Concomitant]
     Indication: PREMEDICATION
     Route: 042
     Dates: start: 20040203, end: 20040203
  5. BENADRYL [Concomitant]
     Indication: PREMEDICATION
     Route: 042
     Dates: start: 20040203, end: 20040203
  6. KYTRIL [Concomitant]
     Indication: PREMEDICATION
     Route: 042
     Dates: start: 20040203, end: 20040203

REACTIONS (3)
  - DYSPNOEA [None]
  - RESPIRATORY DISTRESS [None]
  - WHEEZING [None]
